FAERS Safety Report 16197097 (Version 1)
Quarter: 2019Q2

REPORT INFORMATION
  Report Type: Spontaneous
  Country: CA (occurrence: CA)
  Receive Date: 20190412
  Receipt Date: 20190412
  Transmission Date: 20190711
  Serious: No
  Sender: FDA-Public Use
  Company Number: None

PATIENT
  Age: 20 Year
  Sex: Female
  Weight: 47.25 kg

DRUGS (1)
  1. DEPO-PROVERA [Suspect]
     Active Substance: MEDROXYPROGESTERONE ACETATE
     Indication: DYSMENORRHOEA
     Dosage: ?          QUANTITY:1 150 MG/ML;OTHER FREQUENCY:EVERY 3 MONTHS;?
     Route: 058

REACTIONS (6)
  - Dizziness [None]
  - Depression [None]
  - Hypophagia [None]
  - Impaired work ability [None]
  - Bedridden [None]
  - Loss of personal independence in daily activities [None]

NARRATIVE: CASE EVENT DATE: 20190105
